FAERS Safety Report 7280802-7 (Version None)
Quarter: 2011Q1

REPORT INFORMATION
  Report Type: 
  Country: None (occurrence: None)
  Receive Date: 20110208
  Receipt Date: 20110131
  Transmission Date: 20110831
  Serious: Yes (Hospitalization, Other)
  Sender: FDA-Public Use
  Company Number: SY-JNJFOC-20110200094

PATIENT
  Age: 63 Year
  Sex: Male

DRUGS (3)
  1. CEFEPIME [Suspect]
     Indication: PRODUCT USED FOR UNKNOWN INDICATION
     Route: 065
  2. METHYLPREDNISOLONE [Concomitant]
     Indication: PRODUCT USED FOR UNKNOWN INDICATION
     Route: 042
  3. TAVANIC [Suspect]
     Indication: EMPYEMA
     Route: 042

REACTIONS (2)
  - HAEMODIALYSIS [None]
  - RENAL TUBULAR DISORDER [None]
